FAERS Safety Report 9178788 (Version 1)
Quarter: 2013Q1

REPORT INFORMATION
  Report Type: Spontaneous
  Country: US (occurrence: US)
  Receive Date: 20130321
  Receipt Date: 20130321
  Transmission Date: 20140127
  Serious: Yes (Hospitalization)
  Sender: FDA-Public Use
  Company Number: US-BAYER-2013-032629

PATIENT
  Age: 31 Year
  Sex: Female
  Weight: 143 kg

DRUGS (4)
  1. YASMIN [Suspect]
  2. YASMIN [Suspect]
  3. VITAMINS NOS [Concomitant]
  4. IBUPIRAC [IBUPROFEN] [Concomitant]

REACTIONS (1)
  - Deep vein thrombosis [None]
